FAERS Safety Report 8780053 (Version 1)
Quarter: 2012Q4

REPORT INFORMATION
  Report Type: Spontaneous
  Country: US (occurrence: None)
  Receive Date: 20120831
  Receipt Date: 20120831
  Transmission Date: 20130627
  Serious: No
  Sender: FDA-Public Use
  Company Number: None

PATIENT
  Age: 17 Year
  Sex: Female
  Weight: 64 kg

DRUGS (1)
  1. DETROL [Suspect]
     Indication: BLADDER DISORDER
     Route: 048

REACTIONS (2)
  - Headache [None]
  - Product substitution issue [None]
